FAERS Safety Report 5829641-1 (Version None)
Quarter: 2008Q3

REPORT INFORMATION
  Report Type: 
  Country: None (occurrence: None)
  Receive Date: 20080729
  Receipt Date: 20080716
  Transmission Date: 20090109
  Serious: Yes (Hospitalization)
  Sender: FDA-Public Use
  Company Number: 2008BI005317

PATIENT
  Age: 66 Year
  Sex: Male
  Weight: 44.9061 kg

DRUGS (3)
  1. AVONEX [Suspect]
     Indication: MULTIPLE SCLEROSIS
     Dosage: 30 UG;QW;IM, 30 UG;QW;IM
     Route: 030
     Dates: start: 19981027, end: 20000101
  2. AVONEX [Suspect]
     Indication: MULTIPLE SCLEROSIS
     Dosage: 30 UG;QW;IM, 30 UG;QW;IM
     Route: 030
     Dates: start: 20040101
  3. PREDNISONE TAB [Concomitant]

REACTIONS (16)
  - BACTERIAL INFECTION [None]
  - CORONARY ARTERY OCCLUSION [None]
  - CORONARY ARTERY STENOSIS [None]
  - CROHN'S DISEASE [None]
  - DILATATION VENTRICULAR [None]
  - EJECTION FRACTION DECREASED [None]
  - FALL [None]
  - FEMORAL NECK FRACTURE [None]
  - GASTRIC ULCER [None]
  - HIP FRACTURE [None]
  - LARGE INTESTINAL ULCER [None]
  - MYOCARDIAL INFARCTION [None]
  - OESOPHAGEAL STENOSIS [None]
  - RED BLOOD CELL COUNT DECREASED [None]
  - SEPTIC SHOCK [None]
  - URINARY TRACT INFECTION [None]
